FAERS Safety Report 6636772-5 (Version None)
Quarter: 2010Q1

REPORT INFORMATION
  Report Type: 
  Country: None (occurrence: None)
  Receive Date: 20100316
  Receipt Date: 20100308
  Transmission Date: 20100710
  Serious: Yes (Death)
  Sender: FDA-Public Use
  Company Number: JP-BAYER-201011180BYL

PATIENT
  Age: 82 Year
  Sex: Male

DRUGS (3)
  1. ASPIRIN [Suspect]
     Indication: CEREBRAL ISCHAEMIA
     Route: 048
  2. RADICUT [Suspect]
     Indication: CEREBRAL ISCHAEMIA
     Route: 065
  3. ANTIBIOTICS [Suspect]
     Indication: DRUG USE FOR UNKNOWN INDICATION
     Route: 065

REACTIONS (3)
  - HAEMOLYTIC ANAEMIA [None]
  - JAUNDICE [None]
  - MALAISE [None]
